APPROVED DRUG PRODUCT: TIVORBEX
Active Ingredient: INDOMETHACIN
Strength: 40MG
Dosage Form/Route: CAPSULE;ORAL
Application: N204768 | Product #002
Applicant: GENUS LIFESCIENCES INC
Approved: Feb 24, 2014 | RLD: Yes | RS: No | Type: DISCN

PATENTS:
Patent 9089471 | Expires: Apr 23, 2030
Patent 8992982 | Expires: Apr 23, 2030
Patent 8734847 | Expires: Apr 23, 2030